FAERS Safety Report 9493882 (Version 1)
Quarter: 2013Q3

REPORT INFORMATION
  Report Type: Spontaneous
  Country: NL (occurrence: NL)
  Receive Date: 20130903
  Receipt Date: 20130903
  Transmission Date: 20140515
  Serious: Yes (Death)
  Sender: FDA-Public Use
  Company Number: NL-AMGEN-NLDSP2013061184

PATIENT
  Age: 65 Year
  Sex: Female

DRUGS (8)
  1. XGEVA [Suspect]
     Indication: BONE DISORDER
     Dosage: UNK UNK, Q4WK
     Route: 065
     Dates: start: 20130201
  2. SUPRADYN VITAL 50+ [Concomitant]
     Dosage: UNK
  3. FERO GRADUMET [Concomitant]
     Dosage: 105 MG, UNK
  4. HYDROCHLORTHIAZID [Concomitant]
     Dosage: 25 MG, UNK
  5. METOPROLOL                         /00376903/ [Concomitant]
  6. FENTANYL MATRIX [Concomitant]
     Dosage: 25 MUG, QH
  7. CALCI CHEW D3 [Concomitant]
  8. TAMOXIFEN [Concomitant]
     Dosage: 20 MG, UNK

REACTIONS (1)
  - Death [Fatal]
